FAERS Safety Report 4519631-3 (Version None)
Quarter: 2004Q4

REPORT INFORMATION
  Report Type: 
  Country: None (occurrence: None)
  Receive Date: 20041123
  Receipt Date: 20041108
  Transmission Date: 20050328
  Serious: Yes (Hospitalization)
  Sender: FDA-Public Use
  Company Number: THYM-10351

PATIENT
  Age: 55 Year
  Sex: Male
  Weight: 115 kg

DRUGS (31)
  1. THYMOGLOBULIN [Suspect]
     Indication: RENAL TRANSPLANT
     Dosage: 125 MG QD IV
     Route: 042
     Dates: start: 20041104, end: 20041105
  2. THYMOGLOBULIN [Suspect]
     Indication: RENAL TRANSPLANT
     Dosage: 170 MG QD IV
     Route: 042
     Dates: start: 20041106, end: 20041106
  3. THYMOGLOBULIN [Suspect]
     Indication: RENAL TRANSPLANT
     Dosage: 175 MG QD IV
     Route: 042
     Dates: start: 20041107, end: 20041107
  4. MORPHINE [Concomitant]
  5. PEPCID [Concomitant]
  6. PHENERGAN [Concomitant]
  7. BENADRYL [Concomitant]
  8. DILTIAZEM [Concomitant]
  9. DOPAMINE HCL [Concomitant]
  10. REGULAR ILETIN II [Concomitant]
  11. SOLU-MEDROL [Concomitant]
  12. DOCUSATE SODIUM [Concomitant]
  13. NYSTATIN [Concomitant]
  14. CELLCEPT [Concomitant]
  15. HYDRALAZINE [Concomitant]
  16. LASIX [Concomitant]
  17. CALCIUM GLUCONATE [Concomitant]
  18. KAYEXALATE [Concomitant]
  19. VERSED [Concomitant]
  20. FENTANYL [Concomitant]
  21. DIPRIVAN [Concomitant]
  22. HEPARIN [Concomitant]
  23. KANAMYCIN [Concomitant]
  24. MANNITOL [Concomitant]
  25. ALBUMIN (HUMAN) [Concomitant]
  26. ACETAMINOPHEN [Concomitant]
  27. SODIUM BICARBONATE [Concomitant]
  28. PERCOCET [Concomitant]
  29. MAGNESIUM SULFATE [Concomitant]
  30. METOLAZONE [Concomitant]
  31. CIPRO [Concomitant]

REACTIONS (2)
  - NON-CARDIOGENIC PULMONARY OEDEMA [None]
  - RESPIRATORY FAILURE [None]
